FAERS Safety Report 23940503 (Version 3)
Quarter: 2024Q3

REPORT INFORMATION
  Report Type: Spontaneous
  Country: BE (occurrence: BE)
  Receive Date: 20240605
  Receipt Date: 20240722
  Transmission Date: 20241016
  Serious: Yes (Death, Hospitalization)
  Sender: BOEHRINGER INGELHEIM
  Company Number: BE-BoehringerIngelheim-2024-BI-032027

PATIENT
  Age: 68 Year
  Sex: Female
  Weight: 72.6 kg

DRUGS (1)
  1. OFEV [Suspect]
     Active Substance: NINTEDANIB
     Indication: Interstitial lung disease
     Dates: start: 20211019, end: 20240604

REACTIONS (1)
  - Malignant neoplasm progression [Fatal]

NARRATIVE: CASE EVENT DATE: 20240604
